FAERS Safety Report 24705709 (Version 1)
Quarter: 2024Q4

REPORT INFORMATION
  Report Type: Spontaneous
  Country: GB (occurrence: GB)
  Receive Date: 20241206
  Receipt Date: 20241206
  Transmission Date: 20250115
  Serious: Yes (Other)
  Sender: JUBILANT
  Company Number: None

PATIENT
  Sex: Female
  Weight: 63 kg

DRUGS (1)
  1. PAROXETINE [Interacting]
     Active Substance: PAROXETINE
     Indication: Mixed anxiety and depressive disorder
     Dosage: UNK,  UNK
     Route: 065

REACTIONS (7)
  - Headache [Unknown]
  - Hyperhidrosis [Unknown]
  - Drug interaction [Recovered/Resolved]
  - Anxiety [Unknown]
  - Electric shock sensation [Unknown]
  - Disturbance in attention [Unknown]
  - Withdrawal syndrome [Unknown]

NARRATIVE: CASE EVENT DATE: 20241102
